FAERS Safety Report 5699076-3 (Version None)
Quarter: 2008Q2

REPORT INFORMATION
  Report Type: 
  Country: None (occurrence: None)
  Receive Date: 20080408
  Receipt Date: 20061110
  Transmission Date: 20081010
  Serious: No
  Sender: FDA-Public Use
  Company Number: US-BAYER-US-2006-035118

PATIENT
  Age: 43 Year
  Sex: Male

DRUGS (1)
  1. ULTRAVIST 300 [Suspect]
     Indication: COMPUTERISED TOMOGRAM THORAX
     Dosage: UNIT DOSE: 100 ML
     Route: 042
     Dates: start: 20061106, end: 20061106

REACTIONS (3)
  - EYE PRURITUS [None]
  - THROAT IRRITATION [None]
  - URTICARIA [None]
